FAERS Safety Report 9198165 (Version 5)
Quarter: 2014Q1

REPORT INFORMATION
  Report Type: Spontaneous
  Country: US (occurrence: US)
  Receive Date: 20130329
  Receipt Date: 20140129
  Transmission Date: 20141002
  Serious: Yes (Hospitalization, Other)
  Sender: FDA-Public Use
  Company Number: US-BIOGENIDEC-2013BI028374

PATIENT
  Age: 50 Year
  Sex: Female

DRUGS (1)
  1. TYSABRI [Suspect]
     Indication: MULTIPLE SCLEROSIS
     Route: 042
     Dates: start: 20080723, end: 20131010

REACTIONS (5)
  - Device occlusion [Recovered/Resolved]
  - Convulsion [Recovered/Resolved]
  - Organ failure [Not Recovered/Not Resolved]
  - Infection [Unknown]
  - Unresponsive to stimuli [Not Recovered/Not Resolved]
